FAERS Safety Report 6259841-0 (Version None)
Quarter: 2009Q3

REPORT INFORMATION
  Report Type: 
  Country: None (occurrence: None)
  Receive Date: 20090708
  Receipt Date: 20090619
  Transmission Date: 20100115
  Serious: No
  Sender: FDA-Public Use
  Company Number: US-BAYER-200924984NA

PATIENT
  Sex: Female

DRUGS (1)
  1. MAGNEVIST [Suspect]
     Indication: NUCLEAR MAGNETIC RESONANCE IMAGING
     Dosage: ^GIVEN 2X 15ML^
     Dates: start: 20090619, end: 20090619

REACTIONS (3)
  - DIZZINESS [None]
  - NAUSEA [None]
  - SWOLLEN TONGUE [None]
